FAERS Safety Report 9461828 (Version 1)
Quarter: 2013Q3

REPORT INFORMATION
  Report Type: Spontaneous
  Country: US (occurrence: None)
  Receive Date: 20130815
  Receipt Date: 20130815
  Transmission Date: 20140515
  Serious: Yes (Other)
  Sender: FDA-Public Use
  Company Number: None

PATIENT
  Age: 23 Year
  Sex: Female
  Weight: 57.15 kg

DRUGS (1)
  1. IMPLANON [Suspect]
     Dates: start: 20110421, end: 20130828

REACTIONS (2)
  - Ovarian cyst [None]
  - Menorrhagia [None]
